FAERS Safety Report 14091119 (Version 5)
Quarter: 2018Q2

REPORT INFORMATION
  Report Type: Report from Study
  Country: DE (occurrence: DE)
  Receive Date: 20171016
  Receipt Date: 20180609
  Transmission Date: 20180711
  Serious: Yes (Hospitalization)
  Sender: FDA-Public Use
  Company Number: DE-ROCHE-2006852

PATIENT
  Age: 13 Year
  Sex: Female
  Weight: 64 kg

DRUGS (5)
  1. METHOTREXAT [Suspect]
     Active Substance: METHOTREXATE
     Indication: JUVENILE IDIOPATHIC ARTHRITIS
     Route: 058
     Dates: start: 20150317
  2. ETORICOXIB [Concomitant]
     Active Substance: ETORICOXIB
     Indication: JUVENILE IDIOPATHIC ARTHRITIS
     Route: 048
     Dates: start: 20170629
  3. FOLIC ACID. [Concomitant]
     Active Substance: FOLIC ACID
     Indication: PROPHYLAXIS
     Route: 048
     Dates: start: 20150317
  4. TOCILIZUMAB. [Suspect]
     Active Substance: TOCILIZUMAB
     Indication: JUVENILE IDIOPATHIC ARTHRITIS
     Dosage: 480 MG, Q4W
     Route: 042
     Dates: start: 20170629, end: 20180117
  5. METHOTREXAT [Suspect]
     Active Substance: METHOTREXATE
     Dosage: 10 MG, QD
     Route: 058
     Dates: start: 20170601

REACTIONS (4)
  - Hypersensitivity [Recovered/Resolved]
  - Hyperbilirubinaemia [Recovered/Resolved]
  - Arthropathy [Recovered/Resolved]
  - Joint contracture [Recovering/Resolving]

NARRATIVE: CASE EVENT DATE: 20170629
